FAERS Safety Report 7825238-2 (Version None)
Quarter: 2011Q4

REPORT INFORMATION
  Report Type: 
  Country: None (occurrence: None)
  Receive Date: 20111019
  Receipt Date: 20111012
  Transmission Date: 20120403
  Serious: Yes (Hospitalization)
  Sender: FDA-Public Use
  Company Number: US-GLAXOSMITHKLINE-A0864636A

PATIENT
  Age: 46 Year
  Sex: Female

DRUGS (7)
  1. AVANDIA [Suspect]
     Indication: TYPE 2 DIABETES MELLITUS
     Dosage: 4MG PER DAY
     Route: 048
     Dates: start: 20011113, end: 20070101
  2. PREVACID [Concomitant]
  3. GLUCOPHAGE [Concomitant]
  4. NEXIUM [Concomitant]
  5. CELEXA [Concomitant]
  6. IRON SULFATETHIAMIN COMPOUND TAB [Concomitant]
  7. NORCO [Concomitant]

REACTIONS (4)
  - CONDITION AGGRAVATED [None]
  - CARDIAC FAILURE CONGESTIVE [None]
  - HEART RATE IRREGULAR [None]
  - PULMONARY HYPERTENSION [None]
